FAERS Safety Report 25920501 (Version 3)
Quarter: 2025Q4

REPORT INFORMATION
  Report Type: Spontaneous
  Country: JP (occurrence: JP)
  Receive Date: 20251014
  Receipt Date: 20251113
  Transmission Date: 20260118
  Serious: Yes (Other)
  Sender: BRISTOL-MYERS SQUIBB COMPANY
  Company Number: JP-ONO-2025JP018157

PATIENT
  Age: 8 Decade
  Sex: Male

DRUGS (1)
  1. OPDIVO [Suspect]
     Active Substance: NIVOLUMAB
     Indication: Metastatic renal cell carcinoma
     Route: 041

REACTIONS (5)
  - Paraneoplastic neurological syndrome [Recovering/Resolving]
  - Dyskinesia [Recovering/Resolving]
  - Ataxia [Recovering/Resolving]
  - Cognitive disorder [Recovering/Resolving]
  - Decreased appetite [Recovering/Resolving]
